FAERS Safety Report 8390480-1 (Version None)
Quarter: 2012Q2

REPORT INFORMATION
  Report Type: 
  Country: None (occurrence: None)
  Receive Date: 20120529
  Receipt Date: 20120516
  Transmission Date: 20120825
  Serious: Yes (Hospitalization)
  Sender: FDA-Public Use
  Company Number: KR-COVIDIEN/TYCO HEALTHCARE/MALLINCKRODT-T201201934

PATIENT
  Sex: Female
  Weight: 52.8 kg

DRUGS (13)
  1. DEXTROSE 5% AND SODIUM CHLORIDE 0.45% IN PLASTIC CONTAINER [Concomitant]
     Indication: MEDICAL DIET
     Dosage: 1000 ML, UNK
     Route: 042
     Dates: start: 20120408
  2. EXALGO [Suspect]
     Dosage: 4 MG, QD
     Route: 048
     Dates: start: 20120407
  3. MUTERAN [Concomitant]
     Indication: BRONCHITIS
     Dosage: 3 DOSES
     Route: 048
  4. NEURONTIN [Concomitant]
     Indication: CONVULSION
     Dosage: 3 DOSES
     Route: 048
  5. JANUMET [Concomitant]
     Indication: DIABETES MELLITUS
     Dosage: 2 DOSES
     Route: 048
     Dates: start: 20120409
  6. HUMULIN N [Concomitant]
     Indication: HYPOGLYCAEMIA
     Dosage: 8 IU, UNK
     Route: 030
  7. GASMOTIN [Concomitant]
     Indication: NAUSEA
     Dosage: 3 DOSES
     Route: 048
  8. EXALGO [Suspect]
     Dosage: 4 MG, QD
     Route: 048
     Dates: start: 20120228, end: 20120326
  9. GASMOTIN [Concomitant]
     Indication: VOMITING
  10. SURFOLASE [Concomitant]
     Indication: BRONCHITIS
     Dosage: 100 MG, UNK
     Route: 048
     Dates: start: 20120407
  11. EXALGO [Suspect]
     Indication: PAIN MANAGEMENT
     Dosage: 8 MG, QD
     Route: 048
     Dates: start: 20120327, end: 20120406
  12. BEROTEC [Concomitant]
     Indication: ASTHMA
     Dosage: 3 DOSES
     Route: 048
  13. NOVORAPID [Concomitant]
     Indication: DIABETES MELLITUS
     Dosage: 1000 IU, UNK
     Route: 030
     Dates: start: 20120407

REACTIONS (2)
  - HYPOPHAGIA [None]
  - NAUSEA [None]
